FAERS Safety Report 22778318 (Version 2)
Quarter: 2023Q4

REPORT INFORMATION
  Report Type: Spontaneous
  Country: US (occurrence: US)
  Receive Date: 20230802
  Receipt Date: 20231020
  Transmission Date: 20240110
  Serious: Yes (Hospitalization, Other)
  Sender: FDA-Public Use
  Company Number: US-ELI_LILLY_AND_COMPANY-US202307016228

PATIENT
  Sex: Female
  Weight: 64.399 kg

DRUGS (3)
  1. MOUNJARO [Suspect]
     Active Substance: TIRZEPATIDE
     Indication: Weight decreased
     Dosage: UNK UNK, UNKNOWN
     Route: 065
     Dates: start: 202210, end: 202304
  2. EZFE [Concomitant]
     Indication: Iron deficiency anaemia
     Dosage: UNK UNK, UNKNOWN
     Route: 065
  3. CAPECITABINE [Concomitant]
     Active Substance: CAPECITABINE
     Indication: Product used for unknown indication
     Dosage: UNK UNK, UNKNOWN
     Route: 065

REACTIONS (4)
  - Pancreatic carcinoma [Not Recovered/Not Resolved]
  - Medullary thyroid cancer [Unknown]
  - Pancreatitis [Unknown]
  - Off label use [Unknown]
